FAERS Safety Report 25112225 (Version 1)
Quarter: 2025Q1

REPORT INFORMATION
  Report Type: Spontaneous
  Country: US (occurrence: US)
  Receive Date: 20250324
  Receipt Date: 20250324
  Transmission Date: 20250408
  Serious: No
  Sender: UCB
  Company Number: US-UCBSA-2024026768

PATIENT
  Sex: Female

DRUGS (11)
  1. BRIVARACETAM [Suspect]
     Active Substance: BRIVARACETAM
     Indication: Lennox-Gastaut syndrome
  2. BRIVARACETAM [Suspect]
     Active Substance: BRIVARACETAM
     Indication: Off label use
  3. PREDNISONE [Suspect]
     Active Substance: PREDNISONE
     Indication: Lennox-Gastaut syndrome
  4. FELBAMATE [Suspect]
     Active Substance: FELBAMATE
     Indication: Lennox-Gastaut syndrome
  5. OXCARBAZEPINE [Suspect]
     Active Substance: OXCARBAZEPINE
     Indication: Lennox-Gastaut syndrome
  6. TOPIRAMATE [Suspect]
     Active Substance: TOPIRAMATE
     Indication: Lennox-Gastaut syndrome
  7. RUFINAMIDE [Suspect]
     Active Substance: RUFINAMIDE
     Indication: Lennox-Gastaut syndrome
  8. CLOBAZAM [Suspect]
     Active Substance: CLOBAZAM
     Indication: Lennox-Gastaut syndrome
  9. CLONAZEPAM [Suspect]
     Active Substance: CLONAZEPAM
     Indication: Lennox-Gastaut syndrome
  10. EPIDIOLEX [Suspect]
     Active Substance: CANNABIDIOL
     Indication: Lennox-Gastaut syndrome
  11. DEPAKOTE [Suspect]
     Active Substance: DIVALPROEX SODIUM
     Indication: Lennox-Gastaut syndrome

REACTIONS (2)
  - Multiple-drug resistance [Unknown]
  - Off label use [Unknown]
